FAERS Safety Report 25913728 (Version 1)
Quarter: 2025Q4

REPORT INFORMATION
  Report Type: Spontaneous
  Country: EU (occurrence: EU)
  Receive Date: 20251013
  Receipt Date: 20251013
  Transmission Date: 20260118
  Serious: Yes (Other)
  Sender: AMICUS THERAPEUTICS
  Company Number: EU-AMICUS THERAPEUTICS, INC.-AMI_4296

PATIENT
  Age: 45 Year
  Sex: Male
  Weight: 66.8 kg

DRUGS (2)
  1. POMBILITI [Suspect]
     Active Substance: CIPAGLUCOSIDASE ALFA-ATGA
     Indication: Glycogen storage disease type II
     Dosage: 1365 MILLIGRAM, Q2WK
     Route: 042
     Dates: start: 202406
  2. OPFOLDA [Suspect]
     Active Substance: MIGLUSTAT
     Indication: Glycogen storage disease type II
     Dosage: 260 MILLIGRAM, Q2WK
     Route: 048
     Dates: start: 202406

REACTIONS (2)
  - Rehabilitation therapy [Not Recovered/Not Resolved]
  - Intentional dose omission [Recovered/Resolved]

NARRATIVE: CASE EVENT DATE: 20250829
